FAERS Safety Report 6980115-4 (Version None)
Quarter: 2010Q3

REPORT INFORMATION
  Report Type: 
  Country: None (occurrence: None)
  Receive Date: 20100914
  Receipt Date: 20100902
  Transmission Date: 20110219
  Serious: Yes (Other)
  Sender: FDA-Public Use
  Company Number: BR-PFIZER INC-2010111583

PATIENT
  Age: 55 Year
  Sex: Female
  Weight: 70 kg

DRUGS (7)
  1. FRONTAL XR [Suspect]
     Dosage: UNK
     Route: 048
     Dates: start: 20100601, end: 20100101
  2. SERTRALINE HYDROCHLORIDE [Suspect]
     Dosage: UNK
     Dates: start: 20100101, end: 20100101
  3. CLOXAZOLAM [Suspect]
     Dosage: 2 MG, 2X/DAY
     Dates: start: 20100801, end: 20100801
  4. CLOXAZOLAM [Suspect]
     Dosage: 1 MG, 2X/DAY
     Dates: start: 20100801
  5. PRISTIQ [Suspect]
     Indication: DEPRESSION
     Dosage: UNK
     Dates: start: 20100828
  6. PRISTIQ [Suspect]
     Indication: PANIC DISORDER
  7. PURAN T4 [Concomitant]
     Indication: HYPOTHYROIDISM
     Dosage: UNK
     Dates: start: 20070101

REACTIONS (5)
  - BURNING SENSATION [None]
  - DEPRESSION [None]
  - DRUG INEFFECTIVE [None]
  - PAIN [None]
  - PANIC REACTION [None]
